FAERS Safety Report 24577895 (Version 3)
Quarter: 2025Q1

REPORT INFORMATION
  Report Type: Report from Study
  Country: US (occurrence: US)
  Receive Date: 20241104
  Receipt Date: 20250130
  Transmission Date: 20250409
  Serious: Yes (Other)
  Sender: NOVARTIS
  Company Number: US-002147023-NVSC2024US185546

PATIENT
  Age: 28 Year
  Sex: Female

DRUGS (1)
  1. KESIMPTA [Suspect]
     Active Substance: OFATUMUMAB
     Indication: Product used for unknown indication
     Route: 065
     Dates: start: 2024

REACTIONS (12)
  - Lower respiratory tract infection [Unknown]
  - Monoplegia [Unknown]
  - Stress [Unknown]
  - Hand-foot-and-mouth disease [Unknown]
  - Fall [Unknown]
  - Joint injury [Unknown]
  - Emotional disorder [Unknown]
  - Fatigue [Unknown]
  - Decreased appetite [Unknown]
  - Insomnia [Unknown]
  - Feeling abnormal [Unknown]
  - Breast mass [Unknown]

NARRATIVE: CASE EVENT DATE: 20241018
